FAERS Safety Report 9348619 (Version 1)
Quarter: 2013Q2

REPORT INFORMATION
  Report Type: Spontaneous
  Country: DE (occurrence: DE)
  Receive Date: 20130614
  Receipt Date: 20130614
  Transmission Date: 20140414
  Serious: Yes (Other)
  Sender: FDA-Public Use
  Company Number: DE-ELI_LILLY_AND_COMPANY-DE201306002022

PATIENT
  Age: 23 Year
  Sex: Female
  Weight: 91 kg

DRUGS (6)
  1. FLUOXETINE HYDROCHLORIDE [Suspect]
     Indication: DEPRESSION
     Dosage: 80 MG, QD
     Route: 048
     Dates: start: 20071203, end: 20080122
  2. DIPIPERON [Concomitant]
     Indication: PSYCHOTIC DISORDER
     Dosage: 40 MG, QD
     Route: 048
     Dates: start: 20071203, end: 20080122
  3. METHYLPHENIDATE [Concomitant]
     Indication: DEPRESSION
     Dosage: 40 MG, QD
     Route: 048
     Dates: start: 20071203, end: 20080122
  4. FOLIC ACID [Concomitant]
     Indication: PROPHYLAXIS OF NEURAL TUBE DEFECT
     Dosage: 0.8 MG, QD
     Route: 048
  5. IODINE [Concomitant]
     Indication: PROPHYLAXIS OF NEURAL TUBE DEFECT
  6. INSULIN [Concomitant]

REACTIONS (4)
  - Pre-eclampsia [Recovered/Resolved]
  - Thrombocytopenia [Unknown]
  - Placental disorder [Unknown]
  - Maternal exposure during pregnancy [Recovered/Resolved]
